FAERS Safety Report 7893286-2 (Version None)
Quarter: 2011Q4

REPORT INFORMATION
  Report Type: 
  Country: None (occurrence: None)
  Receive Date: 20111104
  Receipt Date: 20111028
  Transmission Date: 20120403
  Serious: Yes (Hospitalization, Other)
  Sender: FDA-Public Use
  Company Number: JP-JNJFOC-20110905429

PATIENT
  Sex: Male

DRUGS (11)
  1. TOPIRAMATE [Suspect]
     Route: 048
     Dates: start: 20110627
  2. ZONISAMIDE [Suspect]
     Indication: INFANTILE SPASMS
     Route: 048
  3. ZONISAMIDE [Suspect]
     Route: 048
     Dates: end: 20110714
  4. SOLITA-T1 [Concomitant]
     Route: 050
     Dates: start: 20110713, end: 20110713
  5. SOLITA-T1 [Concomitant]
     Route: 050
     Dates: start: 20110714, end: 20110721
  6. TOPIRAMATE [Suspect]
     Indication: INFANTILE SPASMS
     Route: 048
     Dates: end: 20110715
  7. TOPIRAMATE [Suspect]
     Route: 048
  8. ONON [Concomitant]
     Route: 048
     Dates: start: 20110201, end: 20110715
  9. ZONISAMIDE [Suspect]
     Route: 048
     Dates: start: 20110701
  10. CLONAZEPAM [Concomitant]
     Route: 048
     Dates: start: 20110713
  11. ACETAMINOPHEN [Concomitant]
     Route: 054
     Dates: start: 20110713

REACTIONS (4)
  - DYSHIDROSIS [None]
  - RHABDOMYOLYSIS [None]
  - DRUG PRESCRIBING ERROR [None]
  - VOMITING [None]
